FAERS Safety Report 23807648 (Version 1)
Quarter: 2024Q2

REPORT INFORMATION
  Report Type: Spontaneous
  Country: US (occurrence: US)
  Receive Date: 20240502
  Receipt Date: 20240502
  Transmission Date: 20240716
  Serious: Yes (Other)
  Sender: FDA-Public Use
  Company Number: US-BMS-IMIDS-REMS_SI-11468865

PATIENT
  Sex: Male

DRUGS (1)
  1. LENALIDOMIDE [Suspect]
     Active Substance: LENALIDOMIDE
     Indication: Product used for unknown indication
     Dates: start: 20220912

REACTIONS (3)
  - Multiple fractures [Unknown]
  - Gait disturbance [Unknown]
  - Off label use [Unknown]
